FAERS Safety Report 8846870 (Version 1)
Quarter: 2012Q4

REPORT INFORMATION
  Report Type: Spontaneous
  Country: US (occurrence: None)
  Receive Date: 20121016
  Receipt Date: 20121016
  Transmission Date: 20130627
  Serious: Yes (Hospitalization)
  Sender: FDA-Public Use
  Company Number: USA/USA/12/0026211

PATIENT
  Age: 2 Year
  Sex: Female

DRUGS (5)
  1. DONEPEZIL HYDROCHLORIDE [Suspect]
     Indication: DRUG USE FOR UNKNOWN INDICATION
  2. MEMANTINE [Suspect]
     Indication: DRUG USE FOR UNKNOWN INDICATION
     Dosage: po
     Route: 048
  3. ORLISTAT (ORLISTAT) [Concomitant]
  4. ACETAMINOPHEN (PARACETAMOL),ACETYLSAL ACID,CAFFEINE CITRATE [Concomitant]
  5. CALCIUM SUPPLEMENT (CALCIUM) [Concomitant]

REACTIONS (7)
  - Encephalopathy [None]
  - Hallucination, visual [None]
  - Agitation [None]
  - Tachycardia [None]
  - Hypotension [None]
  - Body temperature increased [None]
  - Drug level increased [None]
